FAERS Safety Report 4534186-5 (Version None)
Quarter: 2004Q4

REPORT INFORMATION
  Report Type: 
  Country: None (occurrence: None)
  Receive Date: 20041214
  Receipt Date: 20020812
  Transmission Date: 20050328
  Serious: Yes (Death, Other)
  Sender: FDA-Public Use
  Company Number: C-04-0006

PATIENT
  Sex: Female
  Weight: 17.6903 kg

DRUGS (1)
  1. PROMETHAZINE [Suspect]
     Dosage: ORAL
     Route: 048
     Dates: start: 20020325

REACTIONS (3)
  - CONDITION AGGRAVATED [None]
  - DIARRHOEA [None]
  - MEDICATION ERROR [None]
